FAERS Safety Report 6934226-X (Version None)
Quarter: 2010Q3

REPORT INFORMATION
  Report Type: 
  Country: None (occurrence: None)
  Receive Date: 20100820
  Receipt Date: 20100817
  Transmission Date: 20110219
  Serious: Yes (Other)
  Sender: FDA-Public Use
  Company Number: GB-ROXANE LABORATORIES, INC.-2010-RO-01098RO

PATIENT
  Age: 6 Year
  Sex: Male

DRUGS (4)
  1. LEVETIRACETAM [Suspect]
     Indication: CONVULSION
     Dosage: 1000 MG
     Route: 048
  2. PHENYTOIN [Suspect]
     Indication: CONVULSION
     Route: 042
  3. HEPARIN [Suspect]
     Indication: ANTICOAGULANT THERAPY
  4. WARFARIN [Suspect]
     Indication: ANTICOAGULANT THERAPY

REACTIONS (2)
  - MUCOSAL HAEMORRHAGE [None]
  - THROMBOCYTOPENIA [None]
